FAERS Safety Report 11860001 (Version 1)
Quarter: 2015Q4

REPORT INFORMATION
  Report Type: Spontaneous
  Country: GB (occurrence: GB)
  Receive Date: 20151222
  Receipt Date: 20151222
  Transmission Date: 20160305
  Serious: Yes (Death, Hospitalization, Other)
  Sender: FDA-Public Use
  Company Number: GB-SUNOVION-2011SP004300

PATIENT

DRUGS (8)
  1. ZEBINIX [Suspect]
     Active Substance: ESLICARBAZEPINE ACETATE
     Indication: PRODUCT USED FOR UNKNOWN INDICATION
     Dosage: UNK
     Route: 065
     Dates: start: 2010, end: 2010
  2. LAMICTAL [Suspect]
     Active Substance: LAMOTRIGINE
     Dosage: 100 MG, BID
     Route: 048
  3. ZEBINIX [Suspect]
     Active Substance: ESLICARBAZEPINE ACETATE
     Dosage: 1.2 G, QD
     Route: 065
     Dates: start: 2010, end: 2011
  4. TROBALT [Suspect]
     Active Substance: EZOGABINE
     Indication: EPILEPSY
     Dosage: 50 MG, TID
     Route: 048
     Dates: start: 20111107, end: 201111
  5. LAMICTAL [Suspect]
     Active Substance: LAMOTRIGINE
     Indication: EPILEPSY
     Dosage: UNK
     Route: 048
     Dates: start: 20070509
  6. LAMICTAL [Suspect]
     Active Substance: LAMOTRIGINE
     Dosage: 150 MG, BID
     Route: 048
     Dates: start: 20110201
  7. TROBALT [Suspect]
     Active Substance: EZOGABINE
     Dosage: 100 MG, TID
     Route: 048
     Dates: start: 201111
  8. ZEBINIX [Suspect]
     Active Substance: ESLICARBAZEPINE ACETATE
     Dosage: 800 MG, QD
     Route: 065
     Dates: start: 2011

REACTIONS (4)
  - Status epilepticus [Fatal]
  - Epilepsy [Unknown]
  - Rash [Unknown]
  - Drug dose omission [Unknown]

NARRATIVE: CASE EVENT DATE: 20111124
